FAERS Safety Report 6187830-3 (Version None)
Quarter: 2009Q2

REPORT INFORMATION
  Report Type: 
  Country: None (occurrence: None)
  Receive Date: 20090511
  Receipt Date: 20090511
  Transmission Date: 20091009
  Serious: Yes (Other)
  Sender: FDA-Public Use
  Company Number: None

PATIENT
  Age: 72 Year
  Sex: Female
  Weight: 72.5755 kg

DRUGS (2)
  1. LISINOPRIL AND HYDROCHLOROTHIAZIDE [Suspect]
     Indication: BLOOD PRESSURE
     Dosage: 10 MG 1 DAILY
     Dates: start: 20090107, end: 20090409
  2. LISINOPRIL AND HYDROCHLOROTHIAZIDE [Suspect]
     Indication: DIURETIC THERAPY
     Dosage: 10 MG 1 DAILY
     Dates: start: 20090107, end: 20090409

REACTIONS (14)
  - AMNESIA [None]
  - APHONIA [None]
  - CAPILLARY DISORDER [None]
  - CHEST PAIN [None]
  - CONDITION AGGRAVATED [None]
  - COUGH [None]
  - HEADACHE [None]
  - INSOMNIA [None]
  - LOSS OF EMPLOYMENT [None]
  - MALAISE [None]
  - MUSCLE SPASMS [None]
  - OROPHARYNGEAL PAIN [None]
  - URINARY INCONTINENCE [None]
  - VOMITING [None]
